FAERS Safety Report 9715693 (Version 1)
Quarter: 2013Q4

REPORT INFORMATION
  Report Type: Spontaneous
  Country: GB (occurrence: GB)
  Receive Date: 20131127
  Receipt Date: 20131127
  Transmission Date: 20140711
  Serious: Yes (Disabling)
  Sender: FDA-Public Use
  Company Number: GB-ACCORD-020413

PATIENT
  Age: 28 Year
  Sex: Female
  Weight: 88 kg

DRUGS (12)
  1. OLANZAPINE [Concomitant]
     Dates: start: 20130614
  2. PREGABALIN [Concomitant]
     Dates: start: 20130729
  3. PARACETAMOL [Concomitant]
     Dates: start: 20130909, end: 20131007
  4. NITRAZEPAM [Concomitant]
     Dates: start: 20130828
  5. DIHYDROCODEINE [Concomitant]
     Dates: start: 20130729, end: 20131014
  6. GAVISCON ADVANCE [Concomitant]
     Dates: start: 20130927, end: 20131017
  7. PROPRANOLOL [Concomitant]
     Dates: start: 20130729
  8. TOPIRAMATE [Suspect]
     Indication: PRODUCT USED FOR UNKNOWN INDICATION
     Dates: start: 20131105
  9. IBUPROFEN [Concomitant]
     Dates: start: 20130909, end: 20130917
  10. SALBUTAMOL [Concomitant]
     Dates: start: 20130927, end: 20131107
  11. BENZYDAMINE HYDROCHLORIDE [Concomitant]
     Dates: start: 20130920, end: 20131002
  12. PIROXICAM [Concomitant]
     Dates: start: 20130909, end: 20131007

REACTIONS (4)
  - Hallucinations, mixed [Recovering/Resolving]
  - Somnolence [Recovering/Resolving]
  - Confusional state [Recovering/Resolving]
  - Emotional distress [Unknown]
